FAERS Safety Report 11724685 (Version 2)
Quarter: 2017Q1

REPORT INFORMATION
  Report Type: Report from Study
  Country: US (occurrence: US)
  Receive Date: 20151111
  Receipt Date: 20170103
  Transmission Date: 20170428
  Serious: Yes (Hospitalization, Other)
  Sender: FDA-Public Use
  Company Number: US-AMGEN-USASL2015117786

PATIENT
  Age: 53 Year
  Sex: Male

DRUGS (2)
  1. ENBREL [Suspect]
     Active Substance: ETANERCEPT
     Indication: PSORIATIC ARTHROPATHY
  2. ENBREL [Suspect]
     Active Substance: ETANERCEPT
     Indication: RHEUMATOID ARTHRITIS
     Dosage: 50 MG, WEEKLY
     Route: 065
     Dates: start: 20130822

REACTIONS (3)
  - Hip arthroplasty [Unknown]
  - Osteonecrosis [Not Recovered/Not Resolved]
  - Impaired work ability [Unknown]
